FAERS Safety Report 4816288-9 (Version None)
Quarter: 2005Q4

REPORT INFORMATION
  Report Type: 
  Country: None (occurrence: None)
  Receive Date: 20051028
  Receipt Date: 20051019
  Transmission Date: 20060501
  Serious: Yes (Death)
  Sender: FDA-Public Use
  Company Number: 2005-09-1446

PATIENT
  Age: 74 Year
  Sex: Female

DRUGS (6)
  1. PEG-INTRON [Suspect]
     Indication: HEPATITIS C
     Dosage: 80 MCG QW SUBCUTANEOUS
     Route: 058
     Dates: start: 20050323, end: 20050831
  2. REBETOL [Suspect]
     Indication: HEPATITIS C
     Dosage: 600 MG ORAL
     Route: 048
     Dates: start: 20050323, end: 20050907
  3. DIOVAN TABLETS [Concomitant]
  4. AMLODIPINE BESYLATE [Concomitant]
  5. GLYCYRON [Concomitant]
  6. VITAMEDIN CAPSULE [Concomitant]

REACTIONS (5)
  - ASTHENIA [None]
  - CARDIO-RESPIRATORY ARREST [None]
  - DECREASED APPETITE [None]
  - GASTRITIS [None]
  - ORAL INTAKE REDUCED [None]
